FAERS Safety Report 7122665-6 (Version None)
Quarter: 2010Q4

REPORT INFORMATION
  Report Type: 
  Country: None (occurrence: None)
  Receive Date: 20101124
  Receipt Date: 20101119
  Transmission Date: 20110411
  Serious: Yes (Hospitalization)
  Sender: FDA-Public Use
  Company Number: DE-JNJCH-2010021552

PATIENT
  Sex: Female
  Weight: 92 kg

DRUGS (2)
  1. ROGAINE [Suspect]
     Indication: ALOPECIA EFFLUVIUM
     Dosage: TEXT:1-2 ML DAILY
     Route: 061
     Dates: start: 20100601, end: 20100901
  2. METFORMIN [Concomitant]
     Indication: PRODUCT USED FOR UNKNOWN INDICATION
     Dosage: TEXT:1000MG TWO TABLETS IN THE MORNING
     Route: 048

REACTIONS (7)
  - ABNORMAL SENSATION IN EYE [None]
  - APPLICATION SITE BURN [None]
  - APPLICATION SITE VESICLES [None]
  - BLOOD TEST ABNORMAL [None]
  - ERYTHEMA [None]
  - HEADACHE [None]
  - PRURITUS [None]
